FAERS Safety Report 21774428 (Version 1)
Quarter: 2022Q4

REPORT INFORMATION
  Report Type: Spontaneous
  Country: US (occurrence: US)
  Receive Date: 20221224
  Receipt Date: 20221224
  Transmission Date: 20230112
  Serious: Yes (Death, Hospitalization, Other)
  Sender: FDA-Public Use
  Company Number: US-002147023-NVSC2022US296770

PATIENT
  Sex: Male

DRUGS (39)
  1. ENTRESTO [Suspect]
     Active Substance: SACUBITRIL\VALSARTAN
     Indication: Cardiac failure
     Dosage: UNK UNK, BID 24/26 MG (SACUBITRIL 24.3 MG, VALSARTAN 25.7 MG),
     Route: 048
     Dates: start: 20221005
  2. ACETAMINOPHEN [Concomitant]
     Active Substance: ACETAMINOPHEN
     Indication: Pain
     Dosage: 325 MG
     Route: 048
  3. ACETAMINOPHEN [Concomitant]
     Active Substance: ACETAMINOPHEN
     Dosage: 2 DOSAGE FORM (EVERY 6 HOURS AS NEEDED)
     Route: 048
  4. ALBUTEROL [Concomitant]
     Active Substance: ALBUTEROL
     Indication: Dyspnoea
     Dosage: UNK, 90 MCG (USE TWO PUFFS BY MOUTH EVERY 4 HOURS AS NEEDED)
  5. FINASTERIDE [Concomitant]
     Active Substance: FINASTERIDE
     Indication: Product used for unknown indication
     Dosage: 1 DOSAGE FORM, EVERY DAY
     Route: 048
  6. VITAMIN D [Concomitant]
     Active Substance: VITAMIN D NOS
     Indication: Product used for unknown indication
     Dosage: UNK UNK, QD  (1.25 MG (50000 UT) ORAL CAPSULE, TOOK 1 CAPSULE (60,000 UNITS) BY MOUTH WEEKLY)
     Route: 048
     Dates: start: 20221124
  7. SILDENAFIL CITRATE [Concomitant]
     Active Substance: SILDENAFIL CITRATE
     Indication: Product used for unknown indication
     Dosage: 100 MG (TOOK ONE TABLET (10MG) BY MOUTH DAILY AS NEEDED)
     Route: 048
  8. POTASSIUM [Concomitant]
     Active Substance: POTASSIUM
     Indication: Product used for unknown indication
     Dosage: 1 DOSAGE FORM, QD (DAILY)
     Route: 065
     Dates: start: 20221003
  9. PANTOPRAZOLE SODIUM [Concomitant]
     Active Substance: PANTOPRAZOLE SODIUM
     Indication: Product used for unknown indication
     Dosage: 20 MG, BID (TOOK 2 TABLET TWICE DAILY (PATIENT STATED NOT TAKING)
     Route: 048
     Dates: start: 20210824
  10. PANTOPRAZOLE SODIUM [Concomitant]
     Active Substance: PANTOPRAZOLE SODIUM
     Dosage: 40 MG, QD (ONE TABLET (40MG) BY MOUTH TWICE DAILY)
     Route: 048
  11. OXYGEN [Concomitant]
     Active Substance: OXYGEN
     Indication: Product used for unknown indication
     Dosage: 4 L
     Route: 065
     Dates: start: 20211227
  12. OXYGEN [Concomitant]
     Active Substance: OXYGEN
     Dosage: 6 L (NOSTRILS)
     Route: 065
  13. METOPROLOL SUCCINATE [Concomitant]
     Active Substance: METOPROLOL SUCCINATE
     Indication: Product used for unknown indication
     Dosage: 50 MG (EXTENDED RELEASE 24 HOUR)
     Route: 048
     Dates: start: 20220901
  14. MAGNESIUM OXIDE [Concomitant]
     Active Substance: MAGNESIUM OXIDE
     Indication: Product used for unknown indication
     Dosage: UNK 400 (240MG) MG
     Route: 048
     Dates: start: 20220217
  15. MAGNESIUM OXIDE [Concomitant]
     Active Substance: MAGNESIUM OXIDE
     Dosage: 1 DOSAGE FORM, BID (400 (241.3MG) MG), WITH MEALS
     Route: 048
  16. ALBUTEROL\IPRATROPIUM [Concomitant]
     Active Substance: ALBUTEROL\IPRATROPIUM
     Indication: Product used for unknown indication
     Dosage: UNK, 0.5-2.5 MG/3ML (USE ONE VIAL VIA NEBULIZER 3 TIMES DAILY AS NEEDED)
     Dates: start: 20220120
  17. ALBUTEROL\IPRATROPIUM [Concomitant]
     Active Substance: ALBUTEROL\IPRATROPIUM
     Dosage: 3 ML, QID (NEBULIZED INHALATION)
     Route: 065
  18. FLUTICASONE PROPIONATE [Concomitant]
     Active Substance: FLUTICASONE PROPIONATE
     Indication: Product used for unknown indication
     Dosage: UNK (50 MCGIACT) NASAL SUSPENSION TWO SPRAYS IN EACH NOSTRIL ONCE DAILY
     Route: 045
     Dates: start: 20220308
  19. LACTOBACILLUS ACIDOPHILUS\LACTOBACILLUS DELBRUECKII SUBSP. BULGARICUS [Concomitant]
     Active Substance: LACTOBACILLUS ACIDOPHILUS\LACTOBACILLUS DELBRUECKII SUBSP. BULGARICUS
     Indication: Product used for unknown indication
     Dosage: 0.4 MG
     Route: 048
     Dates: start: 20200608
  20. ELIQUIS [Concomitant]
     Active Substance: APIXABAN
     Indication: Product used for unknown indication
     Dosage: 5 MG (TAKE 1 TABLET BY MOUTH TWICE DAILY)
     Route: 048
     Dates: start: 20180821
  21. ELIQUIS [Concomitant]
     Active Substance: APIXABAN
     Dosage: 5 MG (TAKE 1 TABLET BY MOUTH TWICE DAILY)
     Route: 048
     Dates: start: 20181109
  22. DIGOXIN [Concomitant]
     Active Substance: DIGOXIN
     Indication: Product used for unknown indication
     Dosage: 150 UG (TOOK 1 TABLET DAILY)
     Route: 048
     Dates: start: 20220826
  23. COLCHICINE [Concomitant]
     Active Substance: COLCHICINE
     Indication: Product used for unknown indication
     Dosage: 0.6 MG
     Route: 048
     Dates: start: 20220826
  24. CALCIUM [Concomitant]
     Active Substance: CALCIUM
     Indication: Product used for unknown indication
     Dosage: 2 DOSAGE FORM, TID
     Route: 065
     Dates: start: 20221003
  25. BUMETANIDE [Concomitant]
     Active Substance: BUMETANIDE
     Indication: Product used for unknown indication
     Dosage: 1 DOSAGE FORM, QD
     Route: 048
     Dates: start: 20180727
  26. BUMETANIDE [Concomitant]
     Active Substance: BUMETANIDE
     Dosage: 2 DOSAGE FORM, QD
     Route: 048
  27. ATORVASTATIN CALCIUM [Concomitant]
     Active Substance: ATORVASTATIN CALCIUM
     Indication: Product used for unknown indication
     Dosage: 1 DOSAGE FORM, QD
     Route: 048
     Dates: start: 20180822
  28. ATORVASTATIN CALCIUM [Concomitant]
     Active Substance: ATORVASTATIN CALCIUM
     Dosage: 1 DOSAGE FORM, QD
     Route: 048
     Dates: start: 20191226
  29. ANORO ELLIPTA [Concomitant]
     Active Substance: UMECLIDINIUM BROMIDE\VILANTEROL TRIFENATATE
     Indication: Product used for unknown indication
     Dosage: UNK (62.5-25 MCG/INH INHALATION AEROSOL POWDER BREATH ACTIVATED, 1 INHALATION DOSE DAILY)
     Dates: start: 20220628, end: 20220628
  30. POTASSIUM CHLORIDE [Concomitant]
     Active Substance: POTASSIUM CHLORIDE
     Indication: Product used for unknown indication
     Dosage: UNK, QD (20 MILL EQUIVALENT)
     Route: 048
  31. METOPROLOL [Concomitant]
     Active Substance: METOPROLOL
     Indication: Product used for unknown indication
     Dosage: 1 DOSAGE FORM, QD (EXTENDED RELEASE)
     Route: 048
  32. POLYETHYLENE GLYCOL [Concomitant]
     Active Substance: POLYETHYLENE GLYCOL
     Indication: Product used for unknown indication
     Dosage: UNK, BID (3350 (MIRALAX ORAL 1 PACKETS 2 TIMES A DAY POWDER FOR RECONSTLTUTION)
     Route: 048
  33. TAMSULOSIN [Concomitant]
     Active Substance: TAMSULOSIN
     Indication: Product used for unknown indication
     Dosage: 2 DOSAGE FORM, QD (AFTER MEALS)
     Route: 048
  34. PREDNISONE [Concomitant]
     Active Substance: PREDNISONE
     Indication: Product used for unknown indication
     Dosage: 40 MG, DAILY X 3DAYS (12 DAYS)
     Route: 048
  35. PREDNISONE [Concomitant]
     Active Substance: PREDNISONE
     Dosage: 30 MG, DAILY X 3DAYS
     Route: 065
  36. PREDNISONE [Concomitant]
     Active Substance: PREDNISONE
     Dosage: 10 MG, DAILY X 3DAYS
     Route: 048
  37. CALCIUM CARBONATE [Concomitant]
     Active Substance: CALCIUM CARBONATE
     Indication: Product used for unknown indication
     Dosage: 2 DOSAGE FORM, TID ((500 MG (200 MG ELEMENTAL CALCIUM) CHEWABLE)
     Route: 048
  38. ATORVASTATIN [Concomitant]
     Active Substance: ATORVASTATIN
     Indication: Product used for unknown indication
     Dosage: 1 DOSAGE FORM, QD
     Route: 048
  39. APIXABAN [Concomitant]
     Active Substance: APIXABAN
     Indication: Product used for unknown indication
     Dosage: 5 MG, BID
     Route: 048

REACTIONS (2)
  - Disseminated intravascular coagulation [Fatal]
  - Thrombocytopenia [Fatal]
